FAERS Safety Report 9531330 (Version 1)
Quarter: 2013Q3

REPORT INFORMATION
  Report Type: Report from Study
  Country: FR (occurrence: FR)
  Receive Date: 20130918
  Receipt Date: 20130918
  Transmission Date: 20140515
  Serious: Yes (Hospitalization, Other)
  Sender: FDA-Public Use
  Company Number: FR-ASTELLAS-2013EU007941

PATIENT
  Age: 74 Year
  Sex: Male
  Weight: 86 kg

DRUGS (6)
  1. ENZALUTAMIDE [Suspect]
     Indication: PROSTATE CANCER
     Dosage: 160 MG, UID/QD
     Route: 048
     Dates: start: 20130618
  2. INNOHEP [Concomitant]
     Indication: THROMBOSIS PROPHYLAXIS
     Dosage: 0.8 ML, UID/QD
     Route: 058
     Dates: start: 2012, end: 20130305
  3. NORSET [Concomitant]
     Indication: DEPRESSION
     Dosage: 8 MG, UID/QD
     Route: 048
     Dates: start: 2013
  4. VENLAFAXINE [Concomitant]
     Indication: DEPRESSION
     Dosage: 37.5 MG, UID/QD
     Route: 048
     Dates: start: 2013
  5. RITALINE [Concomitant]
     Indication: RESTLESS LEGS SYNDROME
     Dosage: 10 MG, UID/QD
     Route: 048
     Dates: start: 2013
  6. IMOVANE [Concomitant]
     Indication: SLEEP DISORDER
     Dosage: 3.75 MG, UID/QD
     Route: 048
     Dates: start: 2013

REACTIONS (3)
  - Gastrointestinal haemorrhage [Recovered/Resolved with Sequelae]
  - Pneumonia [Recovering/Resolving]
  - Duodenitis [Recovering/Resolving]
